FAERS Safety Report 7123769-4 (Version None)
Quarter: 2010Q4

REPORT INFORMATION
  Report Type: 
  Country: None (occurrence: None)
  Receive Date: 20101125
  Receipt Date: 20101112
  Transmission Date: 20110411
  Serious: Yes (Other)
  Sender: FDA-Public Use
  Company Number: PHHY2010JP36169

PATIENT
  Sex: Male

DRUGS (5)
  1. EXJADE [Suspect]
     Indication: MYELODYSPLASTIC SYNDROME
     Dosage: 750 MG/DAY
     Route: 048
     Dates: start: 20080818, end: 20080831
  2. EXJADE [Suspect]
     Indication: IRON OVERLOAD
     Dosage: 500 MG/DAY
     Route: 048
     Dates: start: 20080901, end: 20081005
  3. EXJADE [Suspect]
     Dosage: 250 MG/DAY
     Route: 048
     Dates: start: 20081006, end: 20081109
  4. EXJADE [Suspect]
     Dosage: 250 MG/DAY
     Route: 048
     Dates: start: 20081201
  5. RED BLOOD CELLS, CONCENTRATED [Concomitant]
     Dosage: 2 UNITS EVERY 2 WEEKS
     Dates: start: 20080818, end: 20090218

REACTIONS (6)
  - ALANINE AMINOTRANSFERASE INCREASED [None]
  - ASPARTATE AMINOTRANSFERASE INCREASED [None]
  - BLOOD BILIRUBIN INCREASED [None]
  - BLOOD CREATININE INCREASED [None]
  - GAMMA-GLUTAMYLTRANSFERASE INCREASED [None]
  - HYPERURICAEMIA [None]
